FAERS Safety Report 4530269-4 (Version None)
Quarter: 2004Q4

REPORT INFORMATION
  Report Type: 
  Country: None (occurrence: None)
  Receive Date: 20041215
  Receipt Date: 20041210
  Transmission Date: 20050328
  Serious: Yes (Other)
  Sender: FDA-Public Use
  Company Number: TCI2004A04522

PATIENT
  Age: 55 Year
  Sex: Male

DRUGS (9)
  1. LANSOPRAZOLE [Suspect]
     Indication: GASTRIC ULCER
     Dosage: 15 MG (15 MG, 1 D) PER ORAL
     Route: 048
     Dates: start: 20041005, end: 20041014
  2. LOXONIN (LOXOPROFEN SODIUM) (PREPARATION FOR ORAL USE (NOS)) [Suspect]
     Dosage: PER ORAL
     Route: 048
  3. DASEN (SERRAPEPTASE) (PREPARATION FOR ORAL USE (NOS)) [Concomitant]
  4. SPIRONOLACTONE (PREPARATION FOR ORAL USE (NOS)) [Concomitant]
  5. ACETYLSALICYLIC ACID SRT [Concomitant]
  6. CARVEDILOL (TABLETS) [Concomitant]
  7. REBAMIPIDE (PREPARATION FOR ORAL USE (NOS)) [Concomitant]
  8. LOSARTAN POTASSIUM (TABLETS) [Concomitant]
  9. CEFCAPENE PIVOXIL HYDROCHLORIDE (PREPARATION FOR ORAL USE (NOS)) [Concomitant]

REACTIONS (10)
  - ALANINE AMINOTRANSFERASE INCREASED [None]
  - ASPARTATE AMINOTRANSFERASE INCREASED [None]
  - BLOOD BILIRUBIN INCREASED [None]
  - BLOOD CREATININE INCREASED [None]
  - BLOOD LACTATE DEHYDROGENASE INCREASED [None]
  - BLOOD UREA INCREASED [None]
  - HEPATIC FUNCTION ABNORMAL [None]
  - LYMPHOCYTE STIMULATION TEST POSITIVE [None]
  - RENAL IMPAIRMENT [None]
  - URTICARIA [None]
